FAERS Safety Report 4611119-4 (Version None)
Quarter: 2005Q1

REPORT INFORMATION
  Report Type: 
  Country: None (occurrence: None)
  Receive Date: 20050317
  Receipt Date: 20050307
  Transmission Date: 20050727
  Serious: Yes (Life-Threatening, Hospitalization)
  Sender: FDA-Public Use
  Company Number: ES-ABBOTT-05P-144-0293116-00

PATIENT
  Age: 61 Year

DRUGS (3)
  1. KLACID IV [Suspect]
     Indication: DRUG USE FOR UNKNOWN INDICATION
     Route: 042
     Dates: start: 20031105, end: 20031119
  2. AMIKACIN [Suspect]
     Indication: DRUG USE FOR UNKNOWN INDICATION
     Route: 065
     Dates: start: 20031105, end: 20031121
  3. CEFOTAXIME [Suspect]
     Indication: DRUG USE FOR UNKNOWN INDICATION
     Route: 065
     Dates: start: 20031105, end: 20031119

REACTIONS (1)
  - RENAL FAILURE ACUTE [None]
